FAERS Safety Report 13550567 (Version 7)
Quarter: 2018Q3

REPORT INFORMATION
  Report Type: Spontaneous
  Country: JP (occurrence: JP)
  Receive Date: 20170516
  Receipt Date: 20180925
  Transmission Date: 20181010
  Serious: Yes (Death, Other)
  Sender: FDA-Public Use
  Company Number: JP-009507513-1705JPN001032J

PATIENT
  Age: 78 Year
  Sex: Male
  Weight: 69 kg

DRUGS (1)
  1. KEYTRUDA [Suspect]
     Active Substance: PEMBROLIZUMAB
     Indication: NODULAR MELANOMA
     Dosage: 2 MG/KG, Q3W
     Route: 041
     Dates: start: 20170421, end: 20170421

REACTIONS (3)
  - Death [Fatal]
  - Tumour haemorrhage [Recovering/Resolving]
  - Malignant neoplasm progression [Unknown]

NARRATIVE: CASE EVENT DATE: 2017
